FAERS Safety Report 19376679 (Version 2)
Quarter: 2021Q2

REPORT INFORMATION
  Report Type: Spontaneous
  Country: IT (occurrence: IT)
  Receive Date: 20210605
  Receipt Date: 20210623
  Transmission Date: 20210717
  Serious: Yes (Hospitalization, Other)
  Sender: FDA-Public Use
  Company Number: IT-AUROBINDO-AUR-APL-2021-023034

PATIENT
  Age: 4 Year
  Sex: Male
  Weight: 16 kg

DRUGS (3)
  1. FLECAINIDE [Suspect]
     Active Substance: FLECAINIDE
     Indication: SUPRAVENTRICULAR TACHYCARDIA
     Dosage: 50 MILLIGRAM, ONCE A DAY
     Route: 048
     Dates: start: 20191001
  2. PROPRANOLOL HYDROCHLORIDE. [Suspect]
     Active Substance: PROPRANOLOL HYDROCHLORIDE
     Indication: SUPRAVENTRICULAR TACHYCARDIA
     Dosage: 24 MILLIGRAM, ONCE A DAY
     Route: 048
     Dates: start: 20170531
  3. PROPRANOLOL HYDROCHLORIDE. [Suspect]
     Active Substance: PROPRANOLOL HYDROCHLORIDE
     Indication: OFF LABEL USE
     Dosage: UNK
     Route: 065

REACTIONS (9)
  - Hypoglycaemia [Recovered/Resolved]
  - Bradycardia [Recovered/Resolved]
  - Off label use [Unknown]
  - Product use in unapproved indication [Unknown]
  - Sopor [Recovered/Resolved]
  - Hyperhidrosis [Recovered/Resolved]
  - Pallor [Recovered/Resolved]
  - Heart sounds abnormal [Recovered/Resolved]
  - Product use issue [Unknown]

NARRATIVE: CASE EVENT DATE: 20210419
